FAERS Safety Report 10922217 (Version 1)
Quarter: 2015Q1

REPORT INFORMATION
  Report Type: Spontaneous
  Country: ES (occurrence: None)
  Receive Date: 20150312
  Receipt Date: 20150312
  Transmission Date: 20150721
  Serious: Yes (Death, Other)
  Sender: FDA-Public Use
  Company Number: 2276524

PATIENT
  Age: 70 Year
  Sex: Female

DRUGS (4)
  1. RALTITREXED DISODIUM [Suspect]
     Active Substance: RALTITREXED
     Indication: ADENOCARCINOMA OF COLON
     Dates: start: 201202
  2. RALTITREXED DISODIUM [Suspect]
     Active Substance: RALTITREXED
     Dates: start: 201202
  3. OXALIPLATIN. [Suspect]
     Active Substance: OXALIPLATIN
     Dates: start: 201202
  4. OXALIPLATIN. [Suspect]
     Active Substance: OXALIPLATIN
     Indication: ADENOCARCINOMA OF COLON
     Dates: start: 201202

REACTIONS (8)
  - Hepatic failure [None]
  - Retroperitoneal lymphadenopathy [None]
  - Hepatomegaly [None]
  - Metastases to lung [None]
  - Metastases to liver [None]
  - Malignant neoplasm progression [None]
  - General physical health deterioration [None]
  - Asthenia [None]
